FAERS Safety Report 15168250 (Version 2)
Quarter: 2018Q3

REPORT INFORMATION
  Report Type: Spontaneous
  Country: DE (occurrence: DE)
  Receive Date: 20180719
  Receipt Date: 20180905
  Transmission Date: 20181010
  Serious: Yes (Disabling)
  Sender: FDA-Public Use
  Company Number: DE-ALLERGAN-1835924US

PATIENT
  Age: 16 Year
  Sex: Female

DRUGS (5)
  1. PRONEURIN [Suspect]
     Active Substance: PROMETHAZINE HYDROCHLORIDE
     Indication: TENSION
     Dosage: 75 MG, QD
     Route: 048
     Dates: start: 20171117, end: 20171128
  2. CITALOPRAM HYDROBROMIDE ? BP [Suspect]
     Active Substance: CITALOPRAM HYDROBROMIDE
     Indication: TENSION
     Dosage: 20 MG, Q MONTH
     Route: 048
     Dates: start: 20170917, end: 20180118
  3. MIRTAZAPIN [Suspect]
     Active Substance: MIRTAZAPINE
     Indication: TENSION
     Dosage: 15 MG, QD
     Route: 048
     Dates: start: 20171023, end: 20180118
  4. FLUOXETIN [Suspect]
     Active Substance: FLUOXETINE HYDROCHLORIDE
     Indication: TENSION
     Dosage: 20 MG, QD
     Route: 048
     Dates: start: 20170901, end: 20170912
  5. PIPAMPERON [Suspect]
     Active Substance: PIPAMPERONE HYDROCHLORIDE
     Indication: TENSION
     Dosage: 40 MG, QD
     Route: 048
     Dates: start: 20171016, end: 20171023

REACTIONS (4)
  - Thyroiditis [Unknown]
  - Product use issue [Unknown]
  - Drug administered to patient of inappropriate age [Unknown]
  - Product use in unapproved indication [Unknown]

NARRATIVE: CASE EVENT DATE: 20180129
